FAERS Safety Report 7386972-4 (Version None)
Quarter: 2011Q1

REPORT INFORMATION
  Report Type: 
  Country: None (occurrence: None)
  Receive Date: 20110323
  Receipt Date: 20110315
  Transmission Date: 20110831
  Serious: Yes (Hospitalization, Other)
  Sender: FDA-Public Use
  Company Number: 2010-3585

PATIENT
  Age: 70 Year
  Sex: Male

DRUGS (1)
  1. APO-GO PFS (APO-GO) APOMORPHINE HYDROCHLORIDE) (APOMORPHINE HYDROCHLOR [Suspect]
     Indication: PARKINSON'S DISEASE
     Dosage: 16 HOURS/DAY 16 HOURS/DAY, SUBCUTANEOUS
     Route: 058
     Dates: start: 20100825, end: 20101002

REACTIONS (3)
  - HYPERTENSION [None]
  - LOSS OF CONSCIOUSNESS [None]
  - SYNCOPE [None]
